FAERS Safety Report 6778838-5 (Version None)
Quarter: 2010Q2

REPORT INFORMATION
  Report Type: 
  Country: None (occurrence: None)
  Receive Date: 20100618
  Receipt Date: 20100607
  Transmission Date: 20101027
  Serious: Yes (Hospitalization, Other)
  Sender: FDA-Public Use
  Company Number: NL-JNJFOC-20100605193

PATIENT
  Age: 7 Year
  Weight: 22 kg

DRUGS (1)
  1. LOPERAMIDE [Suspect]
     Indication: DIARRHOEA
     Route: 048

REACTIONS (8)
  - ABDOMINAL PAIN [None]
  - ANURIA [None]
  - FAECALOMA [None]
  - LEUKOCYTOSIS [None]
  - MEDICATION ERROR [None]
  - OVERDOSE [None]
  - PYREXIA [None]
  - URINARY RETENTION [None]
